FAERS Safety Report 4641180-2 (Version None)
Quarter: 2005Q2

REPORT INFORMATION
  Report Type: 
  Country: None (occurrence: None)
  Receive Date: 20050419
  Receipt Date: 20050419
  Transmission Date: 20051028
  Serious: Yes (Hospitalization, Other)
  Sender: FDA-Public Use
  Company Number: None

PATIENT
  Age: 62 Year
  Sex: Male

DRUGS (9)
  1. THYROID TAB [Suspect]
     Indication: HYPOTHYROIDISM
     Dosage: 120 MG QD
     Dates: start: 20041201, end: 20050401
  2. ALPRAZOLAM [Concomitant]
  3. PROMETRIUM [Concomitant]
  4. BUPROPION [Concomitant]
  5. ESTRADIOL [Concomitant]
  6. PREVACID [Concomitant]
  7. CELEBREX [Concomitant]
  8. ZETIA [Concomitant]
  9. DIOVAN HCT [Concomitant]

REACTIONS (4)
  - CONSTIPATION [None]
  - DRUG LEVEL DECREASED [None]
  - OBSTRUCTION [None]
  - PHARMACEUTICAL PRODUCT COMPLAINT [None]
